FAERS Safety Report 6421744-6 (Version None)
Quarter: 2009Q4

REPORT INFORMATION
  Report Type: 
  Country: None (occurrence: None)
  Receive Date: 20091030
  Receipt Date: 20091021
  Transmission Date: 20100525
  Serious: Yes (Death, Hospitalization)
  Sender: FDA-Public Use
  Company Number: US-NOVOPROD-291574

PATIENT
  Age: 20 Year
  Sex: Male
  Weight: 80.8 kg

DRUGS (25)
  1. NORDITROPIN NORDIFLEX [Suspect]
     Indication: GROWTH HORMONE DEFICIENCY
     Dosage: .3 MG, QD
     Route: 058
     Dates: start: 20090601
  2. NORDITROPIN NORDIFLEX [Suspect]
     Indication: WEIGHT INCREASED
     Dosage: .4 MG, QD
     Route: 058
  3. NORDITROPIN NORDIFLEX [Suspect]
     Dosage: .3 MG, QD
     Route: 058
  4. NORDITROPIN NORDIFLEX [Suspect]
     Dosage: .4 MG, QD
     Route: 058
  5. DDAVP [Concomitant]
     Indication: HYPOPITUITARISM
     Dosage: .03 MG, UNK
     Route: 048
  6. DDAVP [Concomitant]
     Dosage: 2 TAB, BID
     Route: 048
  7. PREDNISONE [Concomitant]
     Indication: HYPOPITUITARISM
     Dosage: 5 MG, UNK
     Dates: end: 20090805
  8. PREDNISONE [Concomitant]
     Dosage: 15 MG, UNK
     Dates: start: 20090804, end: 20090807
  9. KEPPRA [Concomitant]
     Indication: CONVULSION
     Dosage: 250 MG, UNK
     Dates: end: 20090701
  10. LAMICTAL [Concomitant]
     Indication: CONVULSION
     Dosage: 25 MG, UNK
     Dates: end: 20070611
  11. LAMICTAL [Concomitant]
  12. LAMICTAL [Concomitant]
  13. LAMICTAL [Concomitant]
     Dates: start: 20090701
  14. LAMICTAL [Concomitant]
     Dosage: UNKNOWN
  15. LAMICTAL [Concomitant]
  16. CIPRO                              /00042702/ [Concomitant]
     Dates: start: 20090803
  17. COUMADIN [Concomitant]
     Dosage: 5 MG, QD EXCEPT FOR 2.5 MG ON WEDNESDAYS
     Dates: end: 20090803
  18. COUMADIN [Concomitant]
     Dosage: 5 UNK, UNK
     Dates: start: 20090810
  19. CONCERTA [Concomitant]
     Dosage: 36 MG, UNK
  20. OMEPRAZOLE [Concomitant]
     Dosage: 20 MG, UNK
  21. SYNTHROID [Concomitant]
     Dosage: 150 MC
  22. VITAMIN A [Concomitant]
     Dosage: 1.25 MG, UNK
  23. DEPAKOTE [Concomitant]
     Dosage: 500 MG, BID
     Dates: start: 20090621
  24. TRAZODONE [Concomitant]
     Dosage: 50 MG, UNK
     Dates: end: 20090703
  25. MELATONIN [Concomitant]
     Dosage: 3 MG, UNK
     Dates: end: 20090703

REACTIONS (12)
  - CONVULSION [None]
  - DECREASED APPETITE [None]
  - DEHYDRATION [None]
  - INFLUENZA [None]
  - INSULIN-LIKE GROWTH FACTOR DECREASED [None]
  - INTERNATIONAL NORMALISED RATIO ABNORMAL [None]
  - OROPHARYNGEAL PAIN [None]
  - PAIN [None]
  - RETCHING [None]
  - URINARY TRACT INFECTION [None]
  - VOMITING [None]
  - WEIGHT DECREASED [None]
